FAERS Safety Report 6997580-9 (Version None)
Quarter: 2010Q3

REPORT INFORMATION
  Report Type: 
  Country: None (occurrence: None)
  Receive Date: 20100918
  Receipt Date: 20091028
  Transmission Date: 20110219
  Serious: No
  Sender: FDA-Public Use
  Company Number: US-WYE-H11939009

PATIENT
  Sex: Female
  Weight: 99.88 kg

DRUGS (3)
  1. PRISTIQ [Suspect]
     Indication: HOT FLUSH
     Route: 048
     Dates: start: 20090501, end: 20090601
  2. NORVASC [Concomitant]
  3. COREG [Concomitant]

REACTIONS (1)
  - COUGH [None]
